FAERS Safety Report 4687453-9 (Version None)
Quarter: 2005Q2

REPORT INFORMATION
  Report Type: 
  Country: None (occurrence: None)
  Receive Date: 20050609
  Receipt Date: 20050609
  Transmission Date: 20051028
  Serious: Yes (Hospitalization)
  Sender: FDA-Public Use
  Company Number: None

PATIENT
  Age: 61 Year
  Sex: Male
  Weight: 80 kg

DRUGS (3)
  1. AVASTIN [Suspect]
     Indication: COLON CANCER METASTATIC
     Dosage: 600MG   ONCE Q 21 DAYS   INTRAVENOUS
     Route: 042
     Dates: start: 20050222, end: 20050518
  2. OXALYPLATIN [Concomitant]
  3. XELODA [Concomitant]

REACTIONS (1)
  - DEEP VEIN THROMBOSIS [None]
